FAERS Safety Report 8825843 (Version 2)
Quarter: 2012Q4

REPORT INFORMATION
  Report Type: Report from Study
  Country: US (occurrence: US)
  Receive Date: 20121004
  Receipt Date: 20121210
  Transmission Date: 20130627
  Serious: No
  Sender: FDA-Public Use
  Company Number: US-VERTEX PHARMACEUTICAL INC.-2012-021333

PATIENT
  Sex: Male

DRUGS (5)
  1. VX-950 (TELAPREVIR) [Suspect]
     Indication: HEPATITIS C
     Dosage: 750 mg, tid
     Route: 048
     Dates: start: 2012, end: 201209
  2. RIBASPHERE [Concomitant]
     Indication: HEPATITIS C
     Dosage: 2 in am, 1 in pm
     Route: 048
     Dates: start: 2008, end: 201209
  3. PEGASYS [Concomitant]
     Indication: HEPATITIS C
     Dosage: 180 ?g, UNK
     Route: 058
     Dates: start: 2012, end: 201209
  4. PROCRIT                            /00909301/ [Concomitant]
     Indication: HAEMATOCRIT DECREASED
     Dosage: 60000 unit
     Route: 058
     Dates: start: 20110629
  5. PROCRIT                            /00909301/ [Concomitant]
     Indication: HAEMOGLOBIN DECREASED

REACTIONS (1)
  - Drug ineffective [Unknown]
